FAERS Safety Report 18653948 (Version 1)
Quarter: 2020Q4

REPORT INFORMATION
  Report Type: Spontaneous
  Country: US (occurrence: US)
  Receive Date: 20201222
  Receipt Date: 20201222
  Transmission Date: 20210114
  Serious: Yes (Other)
  Sender: FDA-Public Use
  Company Number: None

PATIENT
  Age: 62 Year
  Sex: Female

DRUGS (2)
  1. DEXCOM G6 CGM [Suspect]
     Active Substance: DEVICE
     Indication: DIABETES MELLITUS
  2. UBRELVY [Suspect]
     Active Substance: UBROGEPANT
     Indication: MIGRAINE
     Route: 048

REACTIONS (1)
  - Device malfunction [None]

NARRATIVE: CASE EVENT DATE: 20201217
